FAERS Safety Report 18346109 (Version 1)
Quarter: 2020Q4

REPORT INFORMATION
  Report Type: Spontaneous
  Country: US (occurrence: US)
  Receive Date: 20201005
  Receipt Date: 20201005
  Transmission Date: 20210114
  Serious: No
  Sender: FDA-Public Use
  Company Number: US-JAZZ-2020-US-008016

PATIENT
  Age: 44 Year
  Sex: Female

DRUGS (2)
  1. SUNOSI [Suspect]
     Active Substance: SOLRIAMFETOL
     Indication: SOMNOLENCE
     Dosage: UNK
     Dates: start: 20200612, end: 20200619
  2. SUNOSI [Suspect]
     Active Substance: SOLRIAMFETOL
     Indication: NARCOLEPSY

REACTIONS (7)
  - Blood pressure increased [Unknown]
  - Nausea [Unknown]
  - Headache [Unknown]
  - Drug intolerance [Unknown]
  - Thinking abnormal [Unknown]
  - Feeling jittery [Unknown]
  - Drug ineffective [Unknown]

NARRATIVE: CASE EVENT DATE: 202006
